FAERS Safety Report 14186928 (Version 1)
Quarter: 2017Q4

REPORT INFORMATION
  Report Type: Spontaneous
  Country: US (occurrence: US)
  Receive Date: 20171113
  Receipt Date: 20171113
  Transmission Date: 20180321
  Serious: Yes (Other)
  Sender: FDA-Public Use
  Company Number: None

PATIENT
  Sex: Female
  Weight: 121.5 kg

DRUGS (5)
  1. VITAMIN B12 [Concomitant]
     Active Substance: CYANOCOBALAMIN
  2. KLONOPIN [Concomitant]
     Active Substance: CLONAZEPAM
  3. NAPROXEN. [Concomitant]
     Active Substance: NAPROXEN
  4. HARVONI [Suspect]
     Active Substance: LEDIPASVIR\SOFOSBUVIR
     Indication: HEPATITIS C
     Dosage: ?          QUANTITY:1 TABLET(S);?DAILY ORAL
     Route: 048
     Dates: start: 20171002, end: 20171112
  5. OXYCODONE [Concomitant]
     Active Substance: OXYCODONE

REACTIONS (10)
  - Blood pressure increased [None]
  - Vision blurred [None]
  - Hypoaesthesia [None]
  - Fatigue [None]
  - Asthenia [None]
  - Memory impairment [None]
  - Weight increased [None]
  - Depression [None]
  - Peripheral coldness [None]
  - Insomnia [None]

NARRATIVE: CASE EVENT DATE: 20171030
